FAERS Safety Report 6659385-8 (Version None)
Quarter: 2010Q1

REPORT INFORMATION
  Report Type: 
  Country: None (occurrence: None)
  Receive Date: 20100330
  Receipt Date: 20100322
  Transmission Date: 20100710
  Serious: No
  Sender: FDA-Public Use
  Company Number: US-BIOGENIDEC-2010BI009834

PATIENT
  Sex: Female

DRUGS (1)
  1. TYSABRI [Suspect]
     Indication: MULTIPLE SCLEROSIS
     Route: 042
     Dates: start: 20091110

REACTIONS (9)
  - DEPRESSED MOOD [None]
  - DRY THROAT [None]
  - EYE DISORDER [None]
  - FATIGUE [None]
  - HEADACHE [None]
  - MEMORY IMPAIRMENT [None]
  - NASAL DRYNESS [None]
  - VAGINAL HAEMORRHAGE [None]
  - WEIGHT INCREASED [None]
